FAERS Safety Report 14202446 (Version 2)
Quarter: 2018Q1

REPORT INFORMATION
  Report Type: Spontaneous
  Country: US (occurrence: US)
  Receive Date: 20171117
  Receipt Date: 20180314
  Transmission Date: 20180508
  Serious: Yes (Hospitalization, Other)
  Sender: FDA-Public Use
  Company Number: US-CELGENEUS-USA-20171103641

PATIENT
  Age: 58 Year
  Sex: Female
  Weight: 91.25 kg

DRUGS (2)
  1. OTEZLA [Suspect]
     Active Substance: APREMILAST
     Indication: PSORIATIC ARTHROPATHY
     Dosage: 60 MILLIGRAM
     Route: 048
     Dates: start: 20171002
  2. HYQVIA [Concomitant]
     Active Substance: HUMAN IMMUNOGLOBULIN G\HYALURONIDASE RECOMBINANT HUMAN
     Indication: IMMUNODEFICIENCY
     Dosage: 47.5 GRAM
     Route: 065
     Dates: start: 20171019

REACTIONS (3)
  - Fall [Unknown]
  - Lower limb fracture [Unknown]
  - Contusion [Unknown]

NARRATIVE: CASE EVENT DATE: 20171107
